FAERS Safety Report 21583285 (Version 3)
Quarter: 2023Q2

REPORT INFORMATION
  Report Type: Spontaneous
  Country: JP (occurrence: JP)
  Receive Date: 20221111
  Receipt Date: 20230502
  Transmission Date: 20230722
  Serious: Yes (Other)
  Sender: FDA-Public Use
  Company Number: JP-GLAXOSMITHKLINE-JP2022JPN139655

PATIENT

DRUGS (7)
  1. NUCALA [Suspect]
     Active Substance: MEPOLIZUMAB
     Indication: Eosinophilic granulomatosis with polyangiitis
     Dosage: 300 MG, EVERY 4 WEEKS
     Dates: start: 20191216
  2. PREDNISOLONE [Concomitant]
     Active Substance: PREDNISOLONE
     Indication: Eosinophilic granulomatosis with polyangiitis
     Dosage: 3 MG
     Route: 048
     Dates: start: 20190617
  3. PREGABALIN [Concomitant]
     Active Substance: PREGABALIN
     Indication: Neuralgia
     Dosage: 225 MG
     Route: 048
     Dates: start: 20190616
  4. AMLODIPINE BESYLATE [Concomitant]
     Active Substance: AMLODIPINE BESYLATE
     Indication: Hypertension
     Dosage: 5 MG
     Dates: start: 20190619
  5. VONOPRAZAN FUMARATE TABLET [Concomitant]
     Indication: Gastrooesophageal reflux disease
     Dosage: 10 MG
     Route: 048
     Dates: start: 20190615
  6. DULOXETINE HYDROCHLORIDE [Concomitant]
     Active Substance: DULOXETINE HYDROCHLORIDE
     Indication: Neuralgia
     Dosage: 40 MG
     Route: 048
     Dates: start: 20190722
  7. ALENDRONATE SODIUM [Concomitant]
     Active Substance: ALENDRONATE SODIUM
     Indication: Osteoporosis
     Dosage: 35 MG
     Route: 048
     Dates: start: 20190619

REACTIONS (7)
  - Eosinophilic granulomatosis with polyangiitis [Recovering/Resolving]
  - Condition aggravated [Unknown]
  - Sinusitis [Recovering/Resolving]
  - Rhinitis allergic [Recovering/Resolving]
  - Nasal congestion [Recovering/Resolving]
  - Cystitis [Recovering/Resolving]
  - Pollakiuria [Recovering/Resolving]

NARRATIVE: CASE EVENT DATE: 20211101
